FAERS Safety Report 7150791-4 (Version None)
Quarter: 2010Q4

REPORT INFORMATION
  Report Type: 
  Country: None (occurrence: None)
  Receive Date: 20101210
  Receipt Date: 20100621
  Transmission Date: 20110411
  Serious: Yes (Hospitalization)
  Sender: FDA-Public Use
  Company Number: DE-SANOFI-AVENTIS-2010SA034202

PATIENT
  Age: 77 Year
  Sex: Female

DRUGS (9)
  1. PLAVIX [Suspect]
     Route: 048
  2. ASPIRIN [Interacting]
     Route: 048
  3. ESCITALOPRAM [Interacting]
     Route: 048
     Dates: start: 20081030, end: 20081030
  4. ESCITALOPRAM [Interacting]
     Route: 048
     Dates: start: 20081101, end: 20081105
  5. REMERGIL [Concomitant]
     Route: 048
     Dates: start: 20081007, end: 20081007
  6. REMERGIL [Concomitant]
     Route: 048
     Dates: start: 20081008
  7. DALTEPARIN SODIUM [Concomitant]
     Route: 048
     Dates: start: 20081005, end: 20081013
  8. SIMVASTATIN [Concomitant]
     Route: 048
  9. METOPROLOL [Concomitant]
     Route: 048

REACTIONS (2)
  - DRUG INTERACTION [None]
  - EPISTAXIS [None]
